FAERS Safety Report 26048829 (Version 2)
Quarter: 2025Q4

REPORT INFORMATION
  Report Type: Spontaneous
  Country: US (occurrence: US)
  Receive Date: 20251115
  Receipt Date: 20251201
  Transmission Date: 20260119
  Serious: No
  Sender: SUNOVION
  Company Number: US-SMPA-2025SPA014513

PATIENT
  Age: 88 Year
  Sex: Male
  Weight: 70.295 kg

DRUGS (1)
  1. GEMTESA [Suspect]
     Active Substance: VIBEGRON
     Indication: Hypertonic bladder
     Dosage: 75 MG (ONLY TOOK ONE PILL)
     Route: 048
     Dates: start: 20251028, end: 20251028

REACTIONS (1)
  - Rash pruritic [Recovered/Resolved]

NARRATIVE: CASE EVENT DATE: 20251028
